FAERS Safety Report 9663900 (Version 1)
Quarter: 2013Q4

REPORT INFORMATION
  Report Type: Spontaneous
  Country: US (occurrence: None)
  Receive Date: 20131030
  Receipt Date: 20131030
  Transmission Date: 20140711
  Serious: Yes (Life-Threatening)
  Sender: FDA-Public Use
  Company Number: None

PATIENT
  Age: 49 Year
  Sex: Male
  Weight: 90.72 kg

DRUGS (7)
  1. CYMBALTA [Suspect]
     Indication: DEPRESSION
     Dosage: 1 PILL ONCE DAILY
     Route: 048
     Dates: start: 20131012, end: 20131014
  2. BLOOD PRESSURE MEDICATION [Concomitant]
  3. CHOLESTEROL MEDICATION [Concomitant]
  4. CALCIUM [Concomitant]
  5. MAGNESIUM [Concomitant]
  6. ZINC [Concomitant]
  7. MULTIVITAMIN [Concomitant]

REACTIONS (10)
  - Tremor [None]
  - Tremor [None]
  - Dry mouth [None]
  - Confusional state [None]
  - Agitation [None]
  - Hyperhidrosis [None]
  - Anger [None]
  - Listless [None]
  - Nightmare [None]
  - Body temperature decreased [None]
